FAERS Safety Report 18511529 (Version 1)
Quarter: 2020Q4

REPORT INFORMATION
  Report Type: Spontaneous
  Country: US (occurrence: US)
  Receive Date: 20201116
  Receipt Date: 20201116
  Transmission Date: 20210114
  Serious: Yes (Other)
  Sender: FDA-Public Use
  Company Number: None

PATIENT

DRUGS (3)
  1. QUETIAPINE FUMARATE IMMEDIATE RELEASE [Suspect]
     Active Substance: QUETIAPINE FUMARATE
  2. QUETIAPINE FUMARATE EXTENDED RELEASE [Suspect]
     Active Substance: QUETIAPINE FUMARATE
  3. OLANZAPINE. [Suspect]
     Active Substance: OLANZAPINE

REACTIONS (4)
  - Product substitution issue [None]
  - Hypoaesthesia [None]
  - Drug ineffective [None]
  - Neuropathy peripheral [None]
